FAERS Safety Report 24697953 (Version 2)
Quarter: 2025Q1

REPORT INFORMATION
  Report Type: Spontaneous
  Country: US (occurrence: US)
  Receive Date: 20241204
  Receipt Date: 20250312
  Transmission Date: 20250409
  Serious: No
  Sender: SANOFI AVENTIS
  Company Number: US-SA-2024SA357017

PATIENT
  Age: 74 Year
  Sex: Female
  Weight: 77.27 kg

DRUGS (1)
  1. DUPIXENT [Suspect]
     Active Substance: DUPILUMAB
     Indication: Illness
     Dosage: 300 MG, QOW
     Route: 058

REACTIONS (11)
  - Swelling [Unknown]
  - Heart rate increased [Unknown]
  - Eye infection [Unknown]
  - Urinary tract infection [Not Recovered/Not Resolved]
  - Dysuria [Not Recovered/Not Resolved]
  - Pollakiuria [Not Recovered/Not Resolved]
  - Pain [Not Recovered/Not Resolved]
  - Vision blurred [Unknown]
  - Ocular hyperaemia [Unknown]
  - Dizziness [Unknown]
  - Eye swelling [Unknown]
